FAERS Safety Report 6326691-6 (Version None)
Quarter: 2009Q3

REPORT INFORMATION
  Report Type: 
  Country: None (occurrence: None)
  Receive Date: 20090825
  Receipt Date: 20090821
  Transmission Date: 20100115
  Serious: No
  Sender: FDA-Public Use
  Company Number: US-B.I. PHARMACEUTICALS,INC./RIDGEFIELD-2009-BP-09668BP

PATIENT
  Sex: Female

DRUGS (3)
  1. MICARDIS HCT [Suspect]
     Indication: BLOOD PRESSURE
     Dates: start: 20090801
  2. EXCEDRIN [Concomitant]
     Indication: HEADACHE
  3. TOPROLOL [Concomitant]

REACTIONS (2)
  - HYPOTENSION [None]
  - PULSE PRESSURE DECREASED [None]
